FAERS Safety Report 13135865 (Version 2)
Quarter: 2017Q1

REPORT INFORMATION
  Report Type: Spontaneous
  Country: US (occurrence: US)
  Receive Date: 20170120
  Receipt Date: 20170314
  Transmission Date: 20170428
  Serious: Yes (Other)
  Sender: FDA-Public Use
  Company Number: US-ELI_LILLY_AND_COMPANY-US201608001013

PATIENT
  Sex: Male

DRUGS (5)
  1. CYMBALTA [Suspect]
     Active Substance: DULOXETINE HYDROCHLORIDE
     Indication: PRODUCT USED FOR UNKNOWN INDICATION
     Dosage: UNK, UNKNOWN
     Route: 065
  2. REMERON [Concomitant]
     Active Substance: MIRTAZAPINE
     Indication: PRODUCT USED FOR UNKNOWN INDICATION
     Dosage: UNK, UNKNOWN
     Route: 065
  3. CYMBALTA [Suspect]
     Active Substance: DULOXETINE HYDROCHLORIDE
     Dosage: 30 MG, UNK
     Route: 065
  4. KLONOPIN [Concomitant]
     Active Substance: CLONAZEPAM
     Indication: PRODUCT USED FOR UNKNOWN INDICATION
     Dosage: UNK, UNKNOWN
     Route: 065
  5. CYMBALTA [Suspect]
     Active Substance: DULOXETINE HYDROCHLORIDE
     Dosage: 60 MG, UNKNOWN
     Route: 065

REACTIONS (19)
  - Hostility [Unknown]
  - Vision blurred [Unknown]
  - Fatigue [Unknown]
  - Dysphoria [Unknown]
  - Agitation [Unknown]
  - Anger [Unknown]
  - Insomnia [Unknown]
  - Sensory disturbance [Unknown]
  - Disturbance in attention [Unknown]
  - Paraesthesia [Unknown]
  - Dysphemia [Unknown]
  - Headache [Unknown]
  - Drug withdrawal syndrome [Unknown]
  - Irritability [Unknown]
  - Affect lability [Unknown]
  - Anxiety [Unknown]
  - Dizziness [Unknown]
  - Suicidal ideation [Unknown]
  - Restlessness [Unknown]
